FAERS Safety Report 15855862 (Version 1)
Quarter: 2019Q1

REPORT INFORMATION
  Report Type: Spontaneous
  Country: FR (occurrence: FR)
  Receive Date: 20190122
  Receipt Date: 20190122
  Transmission Date: 20190417
  Serious: Yes (Hospitalization)
  Sender: FDA-Public Use
  Company Number: PHHY2019FR010134

PATIENT
  Age: 46 Year
  Sex: Male

DRUGS (3)
  1. NEBIVOLOL. [Suspect]
     Active Substance: NEBIVOLOL
     Indication: POISONING DELIBERATE
     Dosage: 30 DF, UNK
     Route: 048
     Dates: start: 20181211, end: 20181211
  2. ESIDREX [Suspect]
     Active Substance: HYDROCHLOROTHIAZIDE
     Indication: POISONING DELIBERATE
     Dosage: 10 DF, UNK
     Route: 048
     Dates: start: 20181211, end: 20181211
  3. EXFORGE [Suspect]
     Active Substance: AMLODIPINE BESYLATE\VALSARTAN
     Indication: POISONING DELIBERATE
     Dosage: 10 DF, UNK
     Route: 048
     Dates: start: 20181211, end: 20181211

REACTIONS (3)
  - Hypotension [Recovered/Resolved]
  - Cardiac failure [Recovered/Resolved]
  - Bradycardia [Recovered/Resolved]

NARRATIVE: CASE EVENT DATE: 20181211
